FAERS Safety Report 18712452 (Version 2)
Quarter: 2021Q1

REPORT INFORMATION
  Report Type: Spontaneous
  Country: FR (occurrence: FR)
  Receive Date: 20210107
  Receipt Date: 20210118
  Transmission Date: 20210419
  Serious: Yes (Other)
  Sender: FDA-Public Use
  Company Number: FR-PFIZER INC-2021006889

PATIENT
  Age: 71 Year
  Sex: Female

DRUGS (7)
  1. MEKTOVI [Suspect]
     Active Substance: BINIMETINIB
     Indication: COLORECTAL ADENOCARCINOMA
     Dosage: 90 MG, DAILY
     Route: 065
     Dates: start: 202003, end: 202004
  2. BRAFTOVI [Suspect]
     Active Substance: ENCORAFENIB
     Indication: COLORECTAL ADENOCARCINOMA
     Dosage: 300 MG, DAILY
     Route: 065
     Dates: start: 202003, end: 202004
  3. ERBITUX [Concomitant]
     Active Substance: CETUXIMAB
     Indication: COLORECTAL ADENOCARCINOMA
     Dosage: 250 MG/M2, WEEKLY (5 MG/ML)
     Route: 042
     Dates: start: 20200310
  4. BRAFTOVI [Suspect]
     Active Substance: ENCORAFENIB
     Dosage: 300 MG, DAILY
     Route: 065
     Dates: start: 202008, end: 20200930
  5. BRAFTOVI [Suspect]
     Active Substance: ENCORAFENIB
     Dosage: 225 MG, DAILY
     Route: 065
     Dates: start: 20200930
  6. MEKTOVI [Suspect]
     Active Substance: BINIMETINIB
     Dosage: 60 MG, DAILY
     Route: 065
     Dates: start: 202004, end: 202008
  7. BRAFTOVI [Suspect]
     Active Substance: ENCORAFENIB
     Dosage: 225 MG, DAILY
     Route: 065
     Dates: start: 202004, end: 202008

REACTIONS (3)
  - Myalgia [Recovered/Resolved]
  - Myalgia [Recovered/Resolved]
  - Product use in unapproved indication [Unknown]

NARRATIVE: CASE EVENT DATE: 202004
